FAERS Safety Report 4321035-3 (Version None)
Quarter: 2004Q1

REPORT INFORMATION
  Report Type: 
  Country: None (occurrence: None)
  Receive Date: 20040322
  Receipt Date: 20040315
  Transmission Date: 20041129
  Serious: Yes (Death)
  Sender: FDA-Public Use
  Company Number: PHBS2004US03583

PATIENT
  Age: 29 Year
  Sex: Male

DRUGS (1)
  1. IMATINIB [Suspect]
     Indication: HYPEREOSINOPHILIC SYNDROME
     Dosage: 400 MG/D

REACTIONS (2)
  - CYTOMEGALOVIRUS INFECTION [None]
  - DISSEMINATED CYTOMEGALOVIRAL INFECTION [None]
